FAERS Safety Report 10524848 (Version 1)
Quarter: 2014Q4

REPORT INFORMATION
  Report Type: Spontaneous
  Country: US (occurrence: None)
  Receive Date: 20141015
  Receipt Date: 20141015
  Transmission Date: 20150528
  Serious: Yes (Other)
  Sender: FDA-Public Use
  Company Number: US-2014TEC0000004

PATIENT
  Age: 19 Year
  Sex: Male

DRUGS (3)
  1. LIDOCAINE (LIDOCAINE) [Concomitant]
     Active Substance: LIDOCAINE
  2. MILRINONE (MILRINONE) [Concomitant]
     Active Substance: MILRINONE
  3. HEPARIN SODIUM. [Suspect]
     Active Substance: HEPARIN SODIUM
     Indication: CARDIAC VENTRICULAR THROMBOSIS
     Route: 042

REACTIONS (2)
  - Ventricular tachycardia [None]
  - Heparin-induced thrombocytopenia [None]
